FAERS Safety Report 19913533 (Version 3)
Quarter: 2021Q4

REPORT INFORMATION
  Report Type: Report from Study
  Country: DZ (occurrence: DZ)
  Receive Date: 20211004
  Receipt Date: 20211026
  Transmission Date: 20220303
  Serious: Yes (Hospitalization)
  Sender: FDA-Public Use
  Company Number: DZ-MERCK HEALTHCARE KGAA-9221591

PATIENT
  Age: 32 Year
  Sex: Female

DRUGS (2)
  1. REBIF [Suspect]
     Active Substance: INTERFERON BETA-1A
     Indication: Multiple sclerosis
     Route: 058
     Dates: start: 20200906, end: 20210101
  2. REBIF [Suspect]
     Active Substance: INTERFERON BETA-1A
     Route: 058
     Dates: start: 20211004

REACTIONS (4)
  - Premature delivery [Recovered/Resolved]
  - Limb discomfort [Not Recovered/Not Resolved]
  - Maternal exposure during pregnancy [Recovered/Resolved]
  - Live birth [Recovered/Resolved]

NARRATIVE: CASE EVENT DATE: 20201201
